FAERS Safety Report 11858319 (Version 3)
Quarter: 2016Q1

REPORT INFORMATION
  Report Type: Spontaneous
  Country: US (occurrence: US)
  Receive Date: 20151222
  Receipt Date: 20160323
  Transmission Date: 20160526
  Serious: Yes (Hospitalization, Other)
  Sender: FDA-Public Use
  Company Number: US-BAYER-2015-493225

PATIENT
  Age: 43 Year
  Sex: Female

DRUGS (3)
  1. NECON [Concomitant]
     Active Substance: ETHINYL ESTRADIOL\NORETHINDRONE
  2. BACITRACIN. [Concomitant]
     Active Substance: BACITRACIN
  3. MIRENA [Suspect]
     Active Substance: LEVONORGESTREL
     Indication: CONTRACEPTION
     Dosage: 20 MCG/24HR, CONT
     Route: 015
     Dates: start: 20120326, end: 20140114

REACTIONS (12)
  - Post procedural complication [None]
  - Device issue [None]
  - Procedural pain [None]
  - Weight increased [None]
  - Loss of libido [None]
  - Genital haemorrhage [None]
  - Somatic symptom disorder [None]
  - Depression [None]
  - Emotional distress [None]
  - Scar pain [None]
  - Uterine perforation [None]
  - Abdominal pain lower [None]

NARRATIVE: CASE EVENT DATE: 201203
